FAERS Safety Report 25541318 (Version 2)
Quarter: 2025Q4

REPORT INFORMATION
  Report Type: Spontaneous
  Country: CA (occurrence: CA)
  Receive Date: 20250711
  Receipt Date: 20251003
  Transmission Date: 20260117
  Serious: Yes (Other)
  Sender: CELLTRION
  Company Number: CA-CELLTRION INC.-2025CA017981

PATIENT

DRUGS (1)
  1. STEQEYMA [Suspect]
     Active Substance: USTEKINUMAB-STBA
     Indication: Crohn^s disease
     Dosage: MAINTENANCE - 90 MG - SC (SUBCUTANEOUS) EVERY 4 WEEKS
     Route: 058
     Dates: start: 20250214

REACTIONS (3)
  - Carpal tunnel syndrome [Recovering/Resolving]
  - Postoperative wound infection [Recovered/Resolved]
  - Off label use [Unknown]

NARRATIVE: CASE EVENT DATE: 20250529
